FAERS Safety Report 18542970 (Version 11)
Quarter: 2022Q2

REPORT INFORMATION
  Report Type: Report from Study
  Country: KR (occurrence: None)
  Receive Date: 20201125
  Receipt Date: 20220416
  Transmission Date: 20220721
  Serious: Yes (Hospitalization)
  Sender: FDA-Public Use
  Company Number: KR-ROCHE-2716095

PATIENT
  Age: 59 Year
  Sex: Male

DRUGS (46)
  1. TIRAGOLUMAB [Suspect]
     Active Substance: TIRAGOLUMAB
     Indication: Oesophageal carcinoma
     Dosage: ON 11/NOV/2020, HE RECEIVED MOST RECENT DOSE OF TIRAGLOMAB 600 MG PRIOR TO AE ONSET.
     Route: 042
     Dates: start: 20201021
  2. TIRAGOLUMAB [Suspect]
     Active Substance: TIRAGOLUMAB
     Indication: Gastric cancer
  3. ATEZOLIZUMAB [Suspect]
     Active Substance: ATEZOLIZUMAB
     Indication: Oesophageal carcinoma
     Dosage: ON 11/NOV/2020, HE RECEIVED MOST RECENT DOSE OF ATEZOLIZUMAB 1200 MG PRIOR TO AE ONSET
     Route: 041
     Dates: start: 20201021
  4. ATEZOLIZUMAB [Suspect]
     Active Substance: ATEZOLIZUMAB
     Indication: Gastric cancer
  5. CISPLATIN [Suspect]
     Active Substance: CISPLATIN
     Indication: Oesophageal carcinoma
     Dosage: ON 14/SEP/2020, HE RECEIVED MOST RECENT DOSE OF CISPLATIN 130 MG PRIOR TO AE ONSET.
     Route: 042
     Dates: start: 20200713
  6. CISPLATIN [Suspect]
     Active Substance: CISPLATIN
     Indication: Gastric cancer
  7. FLUOROURACIL [Suspect]
     Active Substance: FLUOROURACIL
     Indication: Oesophageal carcinoma
     Dosage: ON 19/SEP/2020, HE RECEIVED MOST RECENT DOSE OF 5-FLUOROURACIL 1600 MG PRIOR TO AE ONSET.
     Route: 042
     Dates: start: 20200713
  8. FLUOROURACIL [Suspect]
     Active Substance: FLUOROURACIL
     Indication: Gastric cancer
  9. GLIMEPIRIDE;METFORMIN HYDROCHLORIDE [Concomitant]
     Indication: Diabetes mellitus
     Route: 048
     Dates: start: 20200613
  10. FENOFIBRATE [Concomitant]
     Active Substance: FENOFIBRATE
     Indication: Hyperlipidaemia
     Route: 048
     Dates: start: 20200713
  11. FENTANYL [Concomitant]
     Active Substance: FENTANYL
     Indication: Chest pain
     Dosage: DOSE: 200 (UNIT NOT REPORTED)
     Route: 048
     Dates: start: 20200622, end: 20201020
  12. FENTANYL [Concomitant]
     Active Substance: FENTANYL
     Indication: Back pain
     Route: 048
     Dates: start: 20201021
  13. FENTANYL [Concomitant]
     Active Substance: FENTANYL
     Indication: Abdominal pain
     Route: 062
     Dates: start: 20201021
  14. LACTULOSE [Concomitant]
     Active Substance: LACTULOSE
     Indication: Constipation
     Route: 048
     Dates: start: 20200715
  15. MAGNESIUM OXIDE [Concomitant]
     Active Substance: MAGNESIUM OXIDE
     Indication: Constipation
     Route: 048
     Dates: start: 20200720
  16. POLYETHYLENE GLYCOL 4000 [Concomitant]
     Active Substance: POLYETHYLENE GLYCOL 4000
     Indication: Constipation
     Route: 048
     Dates: start: 20200806, end: 20201020
  17. MEGACE F [Concomitant]
     Indication: Decreased appetite
     Route: 048
     Dates: start: 20200728
  18. REBAMIPIDE [Concomitant]
     Active Substance: REBAMIPIDE
     Indication: Dyspepsia
     Route: 048
     Dates: start: 20200828
  19. GAVISCON PEPPERMINT [Concomitant]
     Indication: Dyspepsia
     Route: 048
     Dates: start: 20200825
  20. DULCOLAX-S [Concomitant]
     Indication: Constipation
     Route: 048
     Dates: start: 20200525
  21. NALOXONE HYDROCHLORIDE\OXYCODONE HYDROCHLORIDE [Concomitant]
     Active Substance: NALOXONE HYDROCHLORIDE\OXYCODONE HYDROCHLORIDE
     Indication: Chest pain
     Route: 048
     Dates: start: 20201005
  22. NALOXONE HYDROCHLORIDE\OXYCODONE HYDROCHLORIDE [Concomitant]
     Active Substance: NALOXONE HYDROCHLORIDE\OXYCODONE HYDROCHLORIDE
     Indication: Back pain
  23. PANTOPRAZOLE [Concomitant]
     Active Substance: PANTOPRAZOLE
     Indication: Gastrooesophageal reflux disease
     Route: 048
     Dates: start: 20200919
  24. OXYCODONE HYDROCHLORIDE [Concomitant]
     Active Substance: OXYCODONE HYDROCHLORIDE
     Indication: Abdominal pain
     Route: 048
     Dates: start: 20201015
  25. FAMOTIDINE [Concomitant]
     Active Substance: FAMOTIDINE
     Indication: Dyspepsia
     Route: 048
     Dates: start: 20201012
  26. SODIUM ALGINATE [Concomitant]
     Active Substance: SODIUM ALGINATE
     Indication: Dyspepsia
     Route: 048
     Dates: start: 20201022, end: 20201027
  27. MORPHINE [Concomitant]
     Active Substance: MORPHINE
     Indication: Pain
     Route: 042
     Dates: start: 20201030, end: 20201031
  28. PHOSTEN [Concomitant]
     Route: 042
     Dates: start: 20201030, end: 20201030
  29. TARASYN [Concomitant]
     Indication: Pain
     Route: 042
     Dates: start: 20201030, end: 20201031
  30. TARASYN [Concomitant]
     Route: 042
     Dates: start: 20201117
  31. HYDROMORPHONE HYDROCHLORIDE [Concomitant]
     Active Substance: HYDROMORPHONE HYDROCHLORIDE
     Indication: Abdominal pain
     Route: 048
     Dates: start: 20201031
  32. HYDROMORPHONE HYDROCHLORIDE [Concomitant]
     Active Substance: HYDROMORPHONE HYDROCHLORIDE
     Route: 048
     Dates: start: 20201031
  33. PRUCALOPRIDE SUCCINATE [Concomitant]
     Active Substance: PRUCALOPRIDE SUCCINATE
     Indication: Constipation
     Route: 048
     Dates: start: 20201031
  34. HUMULIN R [Concomitant]
     Active Substance: INSULIN HUMAN
     Indication: Diabetes mellitus
     Route: 042
     Dates: start: 20201117, end: 20201117
  35. K DOWN [Concomitant]
     Route: 054
     Dates: start: 20201117, end: 20201117
  36. PROPOFOL [Concomitant]
     Active Substance: PROPOFOL
     Route: 042
     Dates: start: 20201117, end: 20201117
  37. NADOXOL [Concomitant]
     Route: 042
     Dates: start: 20201117
  38. PENIRAMIN [Concomitant]
     Route: 030
     Dates: start: 20201117
  39. FENTANYL CITRATE [Concomitant]
     Active Substance: FENTANYL CITRATE
     Indication: Procedural pain
     Dosage: 800 OTHER
     Route: 042
     Dates: start: 20201117, end: 20201117
  40. TRAMADOL HYDROCHLORIDE [Concomitant]
     Active Substance: TRAMADOL HYDROCHLORIDE
     Indication: Procedural pain
     Route: 042
     Dates: start: 20201117
  41. DILID [Concomitant]
     Indication: Procedural pain
     Route: 042
     Dates: start: 20201117
  42. AMINO ACIDS\DEXTROSE\ELECTROLYTES NOS\SOYBEAN OIL\VITAMINS [Concomitant]
     Active Substance: AMINO ACIDS\DEXTROSE\ELECTROLYTES NOS\SOYBEAN OIL\VITAMINS
     Route: 042
     Dates: start: 20201117
  43. ZOLPIDEM TARTRATE [Concomitant]
     Active Substance: ZOLPIDEM TARTRATE
     Indication: Insomnia
     Route: 048
     Dates: start: 20201111, end: 20201115
  44. CITOPCIN [Concomitant]
     Indication: Anal fistula
     Route: 048
     Dates: start: 20201111, end: 20201115
  45. ESROBAN [Concomitant]
     Indication: Anal fistula
     Route: 062
     Dates: start: 20201111, end: 20201115
  46. DOCETAXEL [Concomitant]
     Active Substance: DOCETAXEL
     Indication: Neoplasm malignant
     Dates: start: 20201223, end: 20210205

REACTIONS (1)
  - Fournier^s gangrene [Recovered/Resolved]

NARRATIVE: CASE EVENT DATE: 20201116
